FAERS Safety Report 24202863 (Version 2)
Quarter: 2024Q3

REPORT INFORMATION
  Report Type: Other
  Country: US (occurrence: US)
  Receive Date: 20240813
  Receipt Date: 20240822
  Transmission Date: 20241017
  Serious: No
  Sender: TRAVERE THERAPEUTICS
  Company Number: US-TRAVERE-2024TVT00710

PATIENT
  Sex: Female

DRUGS (2)
  1. FILSPARI [Suspect]
     Active Substance: SPARSENTAN
     Indication: Haematuria
     Dosage: TAKE 1 200MG TABLET BY MOUTH 1 TIME A DAY FOR DAYS 1-14
     Route: 048
     Dates: start: 202406
  2. FILSPARI [Suspect]
     Active Substance: SPARSENTAN
     Indication: Chronic kidney disease
     Dosage: 2 200MG TABLETS BY MOUTH 1 TIME A DAY ON DAYS 15-30
     Route: 048

REACTIONS (8)
  - Rash pruritic [Unknown]
  - Product use in unapproved indication [Unknown]
  - Hepatic function abnormal [Unknown]
  - Eye disorder [Unknown]
  - Pruritus [Unknown]
  - Chromaturia [Unknown]
  - Appetite disorder [Unknown]
  - Thermal burns of eye [Unknown]
